FAERS Safety Report 23825386 (Version 2)
Quarter: 2024Q2

REPORT INFORMATION
  Report Type: Spontaneous
  Country: US (occurrence: US)
  Receive Date: 20240507
  Receipt Date: 20240513
  Transmission Date: 20240715
  Serious: Yes (Other)
  Sender: FDA-Public Use
  Company Number: US-MYLANLABS-2024M1040269

PATIENT
  Age: 64 Year
  Sex: Female
  Weight: 49.9 kg

DRUGS (1)
  1. BREYNA [Suspect]
     Active Substance: BUDESONIDE\FORMOTEROL FUMARATE
     Indication: Bronchiectasis
     Dosage: 160/9 MICROGRAM, BID (TWO PUFFS TWICE A DAY)
     Route: 055
     Dates: end: 2024

REACTIONS (12)
  - Pneumonitis [Recovered/Resolved]
  - Pneumonia [Unknown]
  - Chest pain [Recovered/Resolved]
  - Pulmonary pain [Recovered/Resolved]
  - Product substitution issue [Recovered/Resolved]
  - Sputum increased [Recovered/Resolved]
  - Pruritus [Unknown]
  - Muscle spasms [Unknown]
  - Cough [Recovered/Resolved]
  - Back pain [Recovered/Resolved]
  - Hypertension [Recovered/Resolved]
  - Rash [Recovered/Resolved]

NARRATIVE: CASE EVENT DATE: 20240301
